FAERS Safety Report 5009299-4 (Version None)
Quarter: 2006Q2

REPORT INFORMATION
  Report Type: 
  Country: None (occurrence: None)
  Receive Date: 20060524
  Receipt Date: 20060515
  Transmission Date: 20061013
  Serious: Yes (Death)
  Sender: FDA-Public Use
  Company Number: JP-BRISTOL-MYERS SQUIBB COMPANY-13379292

PATIENT
  Age: 78 Year
  Sex: Male

DRUGS (2)
  1. TAXOL [Suspect]
     Indication: BLADDER CANCER
     Route: 042
     Dates: start: 20060501, end: 20060501
  2. GEMCITABINE [Concomitant]
     Dates: start: 20060413, end: 20060501

REACTIONS (3)
  - CEREBRAL INFARCTION [None]
  - DISSEMINATED INTRAVASCULAR COAGULATION [None]
  - PULMONARY CONGESTION [None]
